FAERS Safety Report 7080905-6 (Version None)
Quarter: 2010Q4

REPORT INFORMATION
  Report Type: 
  Country: None (occurrence: None)
  Receive Date: 20101103
  Receipt Date: 20101027
  Transmission Date: 20110411
  Serious: Yes (Hospitalization)
  Sender: FDA-Public Use
  Company Number: US-ASTRAZENECA-2010SE50937

PATIENT
  Age: 40 Year
  Sex: Female

DRUGS (1)
  1. SYMBICORT [Suspect]
     Dosage: 160/ 4.5 MCG, DAILY
     Route: 055

REACTIONS (2)
  - UTERINE HAEMORRHAGE [None]
  - WHITE BLOOD CELL COUNT INCREASED [None]
